FAERS Safety Report 13641027 (Version 1)
Quarter: 2017Q2

REPORT INFORMATION
  Report Type: Spontaneous
  Country: IT (occurrence: US)
  Receive Date: 20170612
  Receipt Date: 20170612
  Transmission Date: 20170830
  Serious: Yes (Other)
  Sender: FDA-Public Use
  Company Number: IT-UCBSA-2017022268

PATIENT
  Age: 10 Month
  Sex: Male

DRUGS (3)
  1. PYRIDOXINE [Concomitant]
     Active Substance: PYRIDOXINE
     Indication: EPILEPSY
     Dosage: 50 MG DAILY
  2. LEVETIRACETAM. [Suspect]
     Active Substance: LEVETIRACETAM
     Indication: EPILEPSY
     Dosage: 80 MG, 2X/DAY (BID)
     Route: 048
  3. DIAZEPAM. [Concomitant]
     Active Substance: DIAZEPAM
     Indication: EPILEPSY
     Dosage: 10 MG (5 MG TO BE ADMINISTERED FOR SEIZURES LASTING MORE THAN 3 MIN)

REACTIONS (3)
  - Seizure [Recovered/Resolved]
  - Viral infection [Recovered/Resolved]
  - Feeding disorder [Unknown]
